FAERS Safety Report 20686110 (Version 1)
Quarter: 2022Q2

REPORT INFORMATION
  Report Type: Report from Study
  Country: US (occurrence: US)
  Receive Date: 20220407
  Receipt Date: 20220407
  Transmission Date: 20220721
  Serious: Yes (Other)
  Sender: FDA-Public Use
  Company Number: US-JAZZ-2021-US-019040

PATIENT
  Sex: Male

DRUGS (5)
  1. XYWAV [Suspect]
     Active Substance: CALCIUM OXYBATE\MAGNESIUM OXYBATE\POTASSIUM OXYBATE\SODIUM OXYBATE
     Indication: Narcolepsy
     Dosage: 2.25 GRAM
     Route: 048
     Dates: start: 202108, end: 202109
  2. XYWAV [Suspect]
     Active Substance: CALCIUM OXYBATE\MAGNESIUM OXYBATE\POTASSIUM OXYBATE\SODIUM OXYBATE
     Dosage: DOSE ADJUSTEMENT
     Route: 048
     Dates: start: 202109, end: 202110
  3. XYWAV [Suspect]
     Active Substance: CALCIUM OXYBATE\MAGNESIUM OXYBATE\POTASSIUM OXYBATE\SODIUM OXYBATE
     Dosage: 4.5 GRAM
     Route: 048
     Dates: start: 202110
  4. SUNOSI [Suspect]
     Active Substance: SOLRIAMFETOL
     Indication: Narcolepsy
     Dosage: UNK
     Route: 048
  5. LEVOTHYROXINE [Concomitant]
     Active Substance: LEVOTHYROXINE
     Dosage: UNK
     Dates: start: 20210908

REACTIONS (2)
  - Post procedural hypoparathyroidism [Not Recovered/Not Resolved]
  - Parathyroidectomy [Unknown]
